FAERS Safety Report 11089815 (Version 2)
Quarter: 2015Q2

REPORT INFORMATION
  Report Type: Spontaneous
  Country: JP (occurrence: None)
  Receive Date: 20150501
  Receipt Date: 20150501
  Transmission Date: 20150821
  Serious: Yes (Hospitalization)
  Sender: FDA-Public Use
  Company Number: 2014JP007609

PATIENT
  Age: 72 Year
  Sex: Female

DRUGS (1)
  1. REGNITE (GABAPENTIN ENACARBIL) TABLET 300 MG [Suspect]
     Active Substance: GABAPENTIN ENACARBIL
     Indication: RESTLESS LEGS SYNDROME
     Route: 048

REACTIONS (4)
  - Pain [None]
  - Intentional product misuse [None]
  - Herpes zoster [None]
  - Decreased appetite [None]
